FAERS Safety Report 6961013-9 (Version None)
Quarter: 2010Q3

REPORT INFORMATION
  Report Type: 
  Country: None (occurrence: None)
  Receive Date: 20100901
  Receipt Date: 20100824
  Transmission Date: 20110219
  Serious: Yes (Other)
  Sender: FDA-Public Use
  Company Number: CA-BAYER-201016781BCC

PATIENT
  Age: 31 Year
  Sex: Female

DRUGS (1)
  1. PHILLIPS MILK OF MAGNEISA [Suspect]
     Indication: PRODUCT USED FOR UNKNOWN INDICATION
     Dosage: CONSUMER TOOK THIS PRODUCT FOR SEVERAL YEARS.
     Route: 048

REACTIONS (4)
  - ANIMAL BITE [None]
  - HAEMATOCHEZIA [None]
  - LOCALISED INFECTION [None]
  - ULCER HAEMORRHAGE [None]
